FAERS Safety Report 8133719-X (Version None)
Quarter: 2012Q1

REPORT INFORMATION
  Report Type: 
  Country: None (occurrence: None)
  Receive Date: 20120213
  Receipt Date: 20120201
  Transmission Date: 20120608
  Serious: Yes (Hospitalization)
  Sender: FDA-Public Use
  Company Number: US-PFIZER INC-US-WYE-H12063909

PATIENT
  Age: 19 Year
  Sex: Female
  Weight: 53.5 kg

DRUGS (4)
  1. CETIRIZINE HYDROCHLORIDE [Concomitant]
     Route: 048
  2. ETANERCEPT [Suspect]
     Indication: JUVENILE ARTHRITIS
     Dosage: 25.0 MG, 2X/WEEK
     Route: 058
     Dates: start: 20051201
  3. PIROXICAM [Suspect]
     Dosage: 20.0 MG, 1X/DAY
     Route: 048
     Dates: start: 20050101, end: 20090909
  4. SERETIDE MITE [Concomitant]
     Dosage: UNK
     Route: 065
     Dates: start: 20080201

REACTIONS (1)
  - BACTERAEMIA [None]
